FAERS Safety Report 6962259-6 (Version None)
Quarter: 2010Q3

REPORT INFORMATION
  Report Type: 
  Country: None (occurrence: None)
  Receive Date: 20100901
  Receipt Date: 20100901
  Transmission Date: 20110219
  Serious: Yes (Death)
  Sender: FDA-Public Use
  Company Number: None

PATIENT
  Age: 60 Year
  Sex: Female
  Weight: 65.7716 kg

DRUGS (1)
  1. AVASTIN [Suspect]

REACTIONS (3)
  - HAEMORRHAGE [None]
  - PARALYSIS [None]
  - THROMBOSIS [None]
